FAERS Safety Report 10063236 (Version 1)
Quarter: 2014Q2

REPORT INFORMATION
  Report Type: Spontaneous
  Country: GB (occurrence: GB)
  Receive Date: 20140407
  Receipt Date: 20140407
  Transmission Date: 20141212
  Serious: Yes (Hospitalization)
  Sender: FDA-Public Use
  Company Number: GB-ELI_LILLY_AND_COMPANY-GB201403009373

PATIENT
  Age: 86 Year
  Sex: Female

DRUGS (10)
  1. FLUOXETINE [Suspect]
     Indication: PRODUCT USED FOR UNKNOWN INDICATION
     Dosage: 20 MG, QD
     Route: 048
  2. WARFARIN [Suspect]
     Indication: PRODUCT USED FOR UNKNOWN INDICATION
     Dosage: UNK UNK, UNKNOWN
     Route: 048
  3. ORAMORPH [Suspect]
     Indication: PRODUCT USED FOR UNKNOWN INDICATION
     Dosage: UNK
     Route: 065
  4. DIGOXIN [Concomitant]
     Dosage: 125 UG, QD
     Route: 048
  5. MORPHINE [Concomitant]
     Dosage: 20 MG, BID
     Route: 048
  6. SIMVASTATIN [Concomitant]
     Dosage: 40 MG, EACH EVENING
     Route: 065
  7. FUROSEMIDE [Concomitant]
     Dosage: 20 MG, BID
     Route: 065
  8. GLYCERYL TRINITRATE [Concomitant]
     Dosage: UNK
  9. SENNA                              /00142201/ [Concomitant]
     Dosage: 15 MG, EACH EVENING
     Route: 065
  10. SODIUM CHLORIDE [Concomitant]
     Dosage: 600 MG, 2 IN THE MORNING, 3 IN THE EVENING

REACTIONS (3)
  - Small intestinal obstruction [Unknown]
  - Chest pain [Unknown]
  - Gastrointestinal haemorrhage [Unknown]
